FAERS Safety Report 17516659 (Version 1)
Quarter: 2020Q1

REPORT INFORMATION
  Report Type: Spontaneous
  Country: US (occurrence: US)
  Receive Date: 20200227
  Receipt Date: 20200227
  Transmission Date: 20200409
  Serious: Yes (Hospitalization)
  Sender: FDA-Public Use
  Company Number: None

PATIENT
  Age: 67 Year
  Sex: Female

DRUGS (1)
  1. ENBREL [Suspect]
     Active Substance: ETANERCEPT
     Indication: OSTEOARTHRITIS
     Dosage: ?          OTHER DOSE:1 SYR;?
     Route: 058
     Dates: start: 20181030

REACTIONS (2)
  - Staphylococcal infection [None]
  - Therapy cessation [None]

NARRATIVE: CASE EVENT DATE: 202001
